FAERS Safety Report 8515337-4 (Version None)
Quarter: 2012Q3

REPORT INFORMATION
  Report Type: 
  Country: None (occurrence: None)
  Receive Date: 20120717
  Receipt Date: 20120706
  Transmission Date: 20120928
  Serious: Yes (Other)
  Sender: FDA-Public Use
  Company Number: JP-VERTEX PHARMACEUTICALS INC.-AE-2012-010177

PATIENT
  Age: 61 Year
  Sex: Female

DRUGS (6)
  1. RIBAVIRIN [Concomitant]
     Route: 048
     Dates: start: 20120515, end: 20120521
  2. TELAVIC (TELAPREVIR) [Suspect]
     Route: 048
     Dates: start: 20120605, end: 20120611
  3. RIBAVIRIN [Concomitant]
     Indication: HEPATITIS C
     Route: 048
     Dates: start: 20120410, end: 20120514
  4. TELAVIC (TELAPREVIR) [Suspect]
     Indication: HEPATITIS C
     Route: 048
     Dates: start: 20120410, end: 20120604
  5. PEGINTERFERON ALFA-2B [Concomitant]
     Indication: HEPATITIS C
     Route: 058
     Dates: start: 20120410, end: 20120618
  6. RIBAVIRIN [Concomitant]
     Route: 048
     Dates: start: 20120522, end: 20120619

REACTIONS (1)
  - ERYTHEMA MULTIFORME [None]
